FAERS Safety Report 18860805 (Version 1)
Quarter: 2021Q1

REPORT INFORMATION
  Report Type: Spontaneous
  Country: AU (occurrence: AU)
  Receive Date: 20210208
  Receipt Date: 20210208
  Transmission Date: 20210420
  Serious: Yes (Hospitalization)
  Sender: FDA-Public Use
  Company Number: AU-PFIZER INC-2020368966

PATIENT
  Sex: Male
  Weight: 95 kg

DRUGS (1)
  1. PRISTIQ EXTENDED?RELEASE [Suspect]
     Active Substance: DESVENLAFAXINE SUCCINATE
     Dosage: UNK
     Dates: start: 2014, end: 2015

REACTIONS (4)
  - Asthenia [Unknown]
  - Malaise [Unknown]
  - Withdrawal syndrome [Unknown]
  - Nausea [Unknown]
